FAERS Safety Report 10871642 (Version 1)
Quarter: 2015Q1

REPORT INFORMATION
  Report Type: Spontaneous
  Country: JP (occurrence: JP)
  Receive Date: 20150226
  Receipt Date: 20150226
  Transmission Date: 20150721
  Serious: Yes (Death, Hospitalization)
  Sender: FDA-Public Use
  Company Number: JP-BAYER-2014-167482

PATIENT
  Age: 64 Year
  Sex: Male
  Weight: 71 kg

DRUGS (8)
  1. STIVARGA [Suspect]
     Active Substance: REGORAFENIB
     Indication: COLORECTAL CANCER
     Dosage: 160 MG, QD (FOR 3 WEEK SAND OFF FOR 1 WEEK)
     Route: 048
     Dates: start: 20140401, end: 20140418
  2. MYSER [Concomitant]
     Active Substance: DIFLUPREDNATE
     Indication: PALMAR-PLANTAR ERYTHRODYSAESTHESIA SYNDROME
     Dosage: UNK
     Route: 061
     Dates: start: 20140402
  3. LANIRAPID [Concomitant]
     Active Substance: METILDIGOXIN
     Dosage: DAILY DOSE .1 MG
     Route: 048
     Dates: start: 2008
  4. STIVARGA [Suspect]
     Active Substance: REGORAFENIB
     Indication: COLORECTAL CANCER
     Dosage: 80 MG, QD (FOR 2 WEEKS AND OFF FOR 1 WEEK)
     Route: 048
     Dates: start: 20140513, end: 20140526
  5. ATELEC [Concomitant]
     Active Substance: CILNIDIPINE
     Dosage: DAILY DOSE 10 MG
     Route: 048
     Dates: start: 20121026
  6. URINORM [Concomitant]
     Active Substance: BENZBROMARONE
     Dosage: DAILY DOSE 50 MG
     Route: 048
     Dates: start: 2008
  7. HIRUDOID [Concomitant]
     Active Substance: GLYCOSAMINOGLYCANS
     Indication: DRUG TOXICITY PROPHYLAXIS
     Dosage: UNK
     Route: 061
     Dates: start: 20140402
  8. MAINTATE [Concomitant]
     Active Substance: BISOPROLOL FUMARATE
     Dosage: DAILY DOSE 2.5 MG
     Route: 048
     Dates: start: 20120203

REACTIONS (5)
  - Colorectal cancer [Fatal]
  - Hypophagia [None]
  - Hypertension [Recovering/Resolving]
  - Weight decreased [None]
  - Palmar-plantar erythrodysaesthesia syndrome [Recovering/Resolving]

NARRATIVE: CASE EVENT DATE: 20140414
